FAERS Safety Report 5903661-0 (Version None)
Quarter: 2008Q3

REPORT INFORMATION
  Report Type: 
  Country: None (occurrence: None)
  Receive Date: 20080930
  Receipt Date: 20080917
  Transmission Date: 20090109
  Serious: Yes (Hospitalization)
  Sender: FDA-Public Use
  Company Number: US-ELI_LILLY_AND_COMPANY-US200807002084

PATIENT
  Sex: Female
  Weight: 97.959 kg

DRUGS (7)
  1. BYETTA [Suspect]
     Indication: TYPE 2 DIABETES MELLITUS
     Dosage: 5 UG, 2/D
     Route: 058
     Dates: start: 20080609, end: 20080709
  2. PRANDIN /USA/ [Concomitant]
     Dosage: 2 MG, DAILY (1/D)
  3. SYNTHROID [Concomitant]
     Dosage: 75 UG, UNKNOWN
  4. ISOSORBIDE [Concomitant]
     Dosage: 30 MG, DAILY (1/D)
  5. LIPITOR [Concomitant]
     Dosage: 10 MG, DAILY (1/D)
  6. PLAVIX [Concomitant]
     Dosage: 75 MG, DAILY (1/D)
  7. FUROSEMIDE [Concomitant]
     Dosage: 20 MG, DAILY (1/D)

REACTIONS (2)
  - EARLY SATIETY [None]
  - PANCREATITIS [None]
